FAERS Safety Report 22032481 (Version 1)
Quarter: 2023Q1

REPORT INFORMATION
  Report Type: Report from Study
  Country: CN (occurrence: CN)
  Receive Date: 20230224
  Receipt Date: 20230224
  Transmission Date: 20230418
  Serious: Yes (Hospitalization)
  Sender: FDA-Public Use
  Company Number: CN-ARGENX-2023-ARGX-CN000534

PATIENT

DRUGS (16)
  1. EFGARTIGIMOD ALFA [Suspect]
     Active Substance: EFGARTIGIMOD ALFA
     Indication: Pemphigus
     Dosage: 2000 MG, 1/WEEK
     Route: 058
     Dates: start: 20221009, end: 20221009
  2. EFGARTIGIMOD ALFA [Suspect]
     Active Substance: EFGARTIGIMOD ALFA
     Dosage: 1000 MG, 1/WEEK
     Route: 058
     Dates: start: 20230216, end: 20230216
  3. HYALURONIDASE (HUMAN RECOMBINANT) [Suspect]
     Active Substance: HYALURONIDASE (HUMAN RECOMBINANT)
     Indication: Pemphigus
     Dosage: 2000 MG, 1/WEEK
     Route: 058
     Dates: start: 20221009, end: 20221009
  4. HYALURONIDASE (HUMAN RECOMBINANT) [Suspect]
     Active Substance: HYALURONIDASE (HUMAN RECOMBINANT)
     Dosage: 1000 MG, 1/WEEK
     Route: 058
     Dates: start: 20230216, end: 20230216
  5. PREDNISONE [Suspect]
     Active Substance: PREDNISONE
     Indication: Pemphigus
     Dosage: 67.5 MG
     Route: 048
     Dates: start: 20221008, end: 20221008
  6. PREDNISONE [Suspect]
     Active Substance: PREDNISONE
     Dosage: 75 MG, DAILY
     Route: 048
     Dates: start: 20230216, end: 20230216
  7. PREDNISONE [Suspect]
     Active Substance: PREDNISONE
     Dosage: 75 MG, DAILY
     Route: 048
     Dates: start: 20230219, end: 20230219
  8. PREDNISOLONE [Suspect]
     Active Substance: PREDNISOLONE
     Indication: Pemphigus
     Dosage: UNK
  9. POTASSIUM CHLORIDE [Concomitant]
     Active Substance: POTASSIUM CHLORIDE
     Indication: Pemphigus
     Dosage: 1 G, BID
     Route: 048
     Dates: start: 20220725
  10. HYDROTALCITE [Concomitant]
     Active Substance: HYDROTALCITE
     Indication: Pemphigus
     Dosage: 1 DF, TID
     Route: 048
     Dates: start: 20220725
  11. CALCIUM CARBONATE\CHOLECALCIFEROL [Concomitant]
     Active Substance: CALCIUM CARBONATE\CHOLECALCIFEROL
     Indication: Pemphigus
     Dosage: 0.6 G, DAILY
     Route: 048
     Dates: start: 20220725
  12. OMEPRAZOLE [Concomitant]
     Active Substance: OMEPRAZOLE
     Indication: Pemphigus
     Dosage: 20 MG, BID
     Route: 048
     Dates: start: 20220907
  13. Recombinant human epidermal growth factor for external use [Concomitant]
     Indication: Pemphigus
     Dosage: 10000 UNIT, BID
     Route: 061
     Dates: start: 20220907
  14. HALOMETASONE [Concomitant]
     Active Substance: HALOMETASONE
     Indication: Pemphigus
     Dosage: 1 G, BID
     Route: 061
     Dates: start: 20220907
  15. FUSIDIC ACID [Concomitant]
     Active Substance: FUSIDIC ACID
     Indication: Pemphigus
     Dosage: 5 G, BID
     Route: 061
     Dates: start: 20220927
  16. MOXIFLOXACIN HYDROCHLORIDE [Concomitant]
     Active Substance: MOXIFLOXACIN HYDROCHLORIDE
     Indication: Skin infection
     Dosage: 400 MG, DAILY
     Route: 048
     Dates: start: 20230216, end: 20230219

REACTIONS (1)
  - Pemphigus [Not Recovered/Not Resolved]

NARRATIVE: CASE EVENT DATE: 20230220
